FAERS Safety Report 9295881 (Version 2)
Quarter: 2013Q2

REPORT INFORMATION
  Report Type: Spontaneous
  Country: US (occurrence: US)
  Receive Date: 20130517
  Receipt Date: 20130620
  Transmission Date: 20140414
  Serious: No
  Sender: FDA-Public Use
  Company Number: US-009507513-1305USA004587

PATIENT
  Sex: Female

DRUGS (2)
  1. DECADRON [Suspect]
  2. CELESTONE [Suspect]
     Route: 048

REACTIONS (1)
  - Hypersensitivity [Unknown]
